FAERS Safety Report 9282692 (Version 2)
Quarter: 2013Q4

REPORT INFORMATION
  Report Type: Spontaneous
  Country: US (occurrence: US)
  Receive Date: 20130510
  Receipt Date: 20131230
  Transmission Date: 20140711
  Serious: Yes (Life-Threatening, Hospitalization)
  Sender: FDA-Public Use
  Company Number: US-BAYER-2013-058106

PATIENT
  Age: 26 Year
  Sex: Female
  Weight: 74.83 kg

DRUGS (11)
  1. YAZ [Suspect]
     Dosage: UNK
     Dates: start: 20111001, end: 201111
  2. CLONAZEPAM [Concomitant]
     Dosage: 2 MG, UNK
     Route: 048
  3. SEROQUEL [Concomitant]
     Dosage: 200 MG, UNK
     Route: 048
  4. SEROQUEL [Concomitant]
     Route: 048
  5. HYDROCODONE W/ACETAMINOPHEN [Concomitant]
     Dosage: 5-500 MG
     Route: 048
  6. NAPROXEN [Concomitant]
     Dosage: 500 MG, UNK
     Route: 048
  7. NAPROSYN [Concomitant]
     Route: 048
  8. GABAPENTIN [Concomitant]
     Dosage: 300 MG, UNK
     Route: 048
  9. KLONOPIN [Concomitant]
     Route: 048
  10. NEURONTIN [Concomitant]
     Route: 048
  11. AVIANE [Concomitant]

REACTIONS (12)
  - Pulmonary thrombosis [Recovered/Resolved]
  - Thrombosis [None]
  - Pain [Recovered/Resolved]
  - Abdominal pain [None]
  - Injury [Recovered/Resolved]
  - General physical health deterioration [Recovered/Resolved]
  - Anxiety [None]
  - Emotional distress [None]
  - Pain [None]
  - Chest pain [Recovered/Resolved]
  - Fatigue [Recovered/Resolved]
  - Asthenia [Recovered/Resolved]
